FAERS Safety Report 5042823-4 (Version None)
Quarter: 2006Q2

REPORT INFORMATION
  Report Type: 
  Country: None (occurrence: None)
  Receive Date: 20060627
  Receipt Date: 20060613
  Transmission Date: 20061013
  Serious: Yes (Death)
  Sender: FDA-Public Use
  Company Number: 2006075277

PATIENT
  Age: 83 Year
  Sex: Male
  Weight: 65 kg

DRUGS (4)
  1. SUTENT [Suspect]
     Indication: METASTATIC RENAL CELL CARCINOMA
     Dosage: 50 MG (50 MG, QD - INTERVAL: EVERY DAY), ORAL
     Route: 048
     Dates: start: 20060428, end: 20060517
  2. RANITIDINE [Concomitant]
  3. NAPROXEN [Concomitant]
  4. AMPICILLIN [Concomitant]

REACTIONS (5)
  - GASTRITIS [None]
  - GENERAL PHYSICAL HEALTH DETERIORATION [None]
  - HEPATIC FAILURE [None]
  - JAUNDICE [None]
  - URINARY TRACT INFECTION [None]
